FAERS Safety Report 6060541-0 (Version None)
Quarter: 2009Q1

REPORT INFORMATION
  Report Type: 
  Country: None (occurrence: None)
  Receive Date: 20090202
  Receipt Date: 20090121
  Transmission Date: 20090719
  Serious: Yes (Death)
  Sender: FDA-Public Use
  Company Number: US-JNJFOC-20090105456

PATIENT
  Sex: Male
  Weight: 70.31 kg

DRUGS (5)
  1. FENTANYL-75 [Suspect]
     Indication: DRUG USE FOR UNKNOWN INDICATION
  2. MORPHINE [Suspect]
     Indication: PAIN
     Route: 065
  3. MORPHINE [Suspect]
     Indication: RESTLESSNESS
     Route: 065
  4. OXYCODONE HCL [Concomitant]
     Indication: PAIN
     Route: 065
  5. OXYCODONE HCL [Concomitant]
     Indication: RESTLESSNESS
     Route: 065

REACTIONS (3)
  - ADENOCARCINOMA [None]
  - DRUG TOXICITY [None]
  - NARCOTIC INTOXICATION [None]
